FAERS Safety Report 8101095-4 (Version None)
Quarter: 2012Q1

REPORT INFORMATION
  Report Type: 
  Country: None (occurrence: None)
  Receive Date: 20120129
  Receipt Date: 20110908
  Transmission Date: 20120608
  Serious: No
  Sender: FDA-Public Use
  Company Number: US-ABBOTT-11P-163-0852798-00

PATIENT
  Age: 53 Year
  Sex: Male

DRUGS (8)
  1. HUMIRA [Suspect]
     Indication: RHEUMATOID ARTHRITIS
  2. TEMOVATE [Concomitant]
     Indication: PSORIASIS
  3. HUMIRA [Suspect]
     Indication: PSORIATIC ARTHROPATHY
  4. COREG [Concomitant]
     Indication: HYPERTENSION
  5. HUMIRA [Suspect]
     Indication: PSORIASIS
     Dates: start: 20090501
  6. FLONASE [Concomitant]
     Indication: HYPERSENSITIVITY
  7. CLARITIN [Concomitant]
     Indication: HYPERSENSITIVITY
  8. AFRIN [Concomitant]
     Indication: HYPERSENSITIVITY
     Route: 045

REACTIONS (2)
  - URTICARIA [None]
  - INJECTION SITE URTICARIA [None]
